FAERS Safety Report 13982938 (Version 1)
Quarter: 2017Q3

REPORT INFORMATION
  Report Type: Report from Study
  Country: None (occurrence: US)
  Receive Date: 20170917
  Receipt Date: 20170917
  Transmission Date: 20171128
  Serious: Yes (Hospitalization)
  Sender: FDA-Public Use
  Company Number: US-ABBVIE-17K-163-2099690-00

PATIENT
  Age: 26 Year
  Sex: Female
  Weight: 70.37 kg

DRUGS (4)
  1. HUMIRA [Suspect]
     Active Substance: ADALIMUMAB
     Route: 058
     Dates: start: 201708
  2. PREDNISONE. [Concomitant]
     Active Substance: PREDNISONE
     Indication: RHEUMATOID ARTHRITIS
  3. HUMIRA [Suspect]
     Active Substance: ADALIMUMAB
     Indication: RHEUMATOID ARTHRITIS
     Route: 058
     Dates: start: 201512
  4. HUMIRA [Suspect]
     Active Substance: ADALIMUMAB
     Route: 058
     Dates: end: 201701

REACTIONS (15)
  - Uterine contractions during pregnancy [Recovered/Resolved]
  - Normal newborn [Unknown]
  - Vomiting in pregnancy [Recovered/Resolved]
  - Myalgia [Recovered/Resolved]
  - Impaired healing [Not Recovered/Not Resolved]
  - Dehydration [Recovered/Resolved]
  - Urinary tract infection [Recovered/Resolved]
  - Kidney infection [Recovered/Resolved]
  - Exposure during pregnancy [Unknown]
  - Premature labour [Recovered/Resolved]
  - Dehydration [Recovered/Resolved]
  - Rheumatoid arthritis [Unknown]
  - Nasopharyngitis [Recovered/Resolved]
  - Nasopharyngitis [Unknown]
  - Nephrolithiasis [Recovered/Resolved]

NARRATIVE: CASE EVENT DATE: 2016
